FAERS Safety Report 14763843 (Version 1)
Quarter: 2018Q2

REPORT INFORMATION
  Report Type: Spontaneous
  Country: US (occurrence: US)
  Receive Date: 20180416
  Receipt Date: 20180416
  Transmission Date: 20180711
  Serious: Yes (Other)
  Sender: FDA-Public Use
  Company Number: US-JNJFOC-20180415817

PATIENT
  Age: 6 Decade

DRUGS (1)
  1. IMBRUVICA [Suspect]
     Active Substance: IBRUTINIB
     Indication: PRODUCT USED FOR UNKNOWN INDICATION
     Route: 065

REACTIONS (6)
  - Arthralgia [Unknown]
  - Pruritus [Unknown]
  - Hypertension [Unknown]
  - Hypersensitivity vasculitis [Unknown]
  - Sepsis [Unknown]
  - Pneumonia [Unknown]

NARRATIVE: CASE EVENT DATE: 20171203
